FAERS Safety Report 9918741 (Version 1)
Quarter: 2014Q1

REPORT INFORMATION
  Report Type: Report from Study
  Country: GB (occurrence: GB)
  Receive Date: 20140224
  Receipt Date: 20140224
  Transmission Date: 20141002
  Serious: Yes (Death, Hospitalization)
  Sender: FDA-Public Use
  Company Number: GB-009507513-1402GBR007654

PATIENT
  Age: 79 Year
  Sex: 0
  Weight: 59 kg

DRUGS (3)
  1. DEXAMETHASONE [Suspect]
     Indication: PLASMA CELL MYELOMA
     Dosage: 20 MG, ON DAYS 1,2,4,5,8,9,11,12 EVERY 21 DAYS
     Route: 048
     Dates: start: 20130611, end: 20130824
  2. STUDY DRUG (UNSPECIFIED) [Suspect]
     Indication: PLASMA CELL MYELOMA
     Dosage: UNK
     Dates: start: 20130611, end: 20130813
  3. BORTEZOMIB [Suspect]
     Indication: PLASMA CELL MYELOMA
     Dosage: 1.2 MG/M2 ON DAYS 1,4,8,11 EVERY 21 DAYS
     Route: 058
     Dates: start: 20130611, end: 20130823

REACTIONS (2)
  - Death [Fatal]
  - Hepatic function abnormal [Not Recovered/Not Resolved]
